FAERS Safety Report 7392619-3 (Version None)
Quarter: 2011Q1

REPORT INFORMATION
  Report Type: 
  Country: None (occurrence: None)
  Receive Date: 20110324
  Receipt Date: 20110303
  Transmission Date: 20110831
  Serious: Yes (Other)
  Sender: FDA-Public Use
  Company Number: 2011US0082

PATIENT
  Sex: Female
  Weight: 61.9 kg

DRUGS (2)
  1. ANAKINRA (ANAKINRA) [Suspect]
     Indication: MUCKLE-WELLS SYNDROME
  2. ANAKINRA (ANAKINRA) [Suspect]
     Indication: CHRONIC INFANTILE NEUROLOGICAL CUTANEOUS AND ARTICULAR SYNDROME

REACTIONS (3)
  - ABORTION SPONTANEOUS [None]
  - PREGNANCY [None]
  - DRUG EXPOSURE DURING PREGNANCY [None]
